FAERS Safety Report 9924992 (Version 1)
Quarter: 2014Q1

REPORT INFORMATION
  Report Type: Spontaneous
  Country: US (occurrence: None)
  Receive Date: 20140224
  Receipt Date: 20140224
  Transmission Date: 20141002
  Serious: Yes (Hospitalization, Disabling)
  Sender: FDA-Public Use
  Company Number: None

PATIENT
  Age: 49 Year
  Sex: Female
  Weight: 67.59 kg

DRUGS (1)
  1. MIRENA IUD [Suspect]
     Dates: start: 20081205

REACTIONS (7)
  - Syncope [None]
  - Fall [None]
  - Shoulder operation [None]
  - Headache [None]
  - Muscle spasms [None]
  - Joint dislocation [None]
  - Presyncope [None]
